FAERS Safety Report 4966479-1 (Version None)
Quarter: 2006Q2

REPORT INFORMATION
  Report Type: 
  Country: None (occurrence: None)
  Receive Date: 20060407
  Receipt Date: 20060331
  Transmission Date: 20061013
  Serious: Yes (Hospitalization)
  Sender: FDA-Public Use
  Company Number: GB-SANOFI-SYNTHELABO-F01200600940

PATIENT
  Sex: Male

DRUGS (5)
  1. OXALIPLATIN [Suspect]
     Indication: COLORECTAL CANCER METASTATIC
     Dosage: 130MG/M2 IV OVER 2 HOURS DAY 1
     Route: 042
     Dates: start: 20060301, end: 20060301
  2. CAPECITABINE [Suspect]
     Dosage: 1000 MG/M2 TWICE DAILY ORALLY DAYS 1-14 REPEATED 3 WEEKLY
     Route: 048
     Dates: start: 20060301, end: 20060314
  3. ERBITUX [Suspect]
     Dosage: A LOADING DOSE OF 400 MG/M2 FOLLOWED BY A WEEKLY INFUSION OF 250 MG/M2
     Dates: start: 20060301, end: 20060315
  4. NOVORAPID [Concomitant]
     Dosage: DOSE VARIES
     Route: 058
  5. INSULATARD NPH HUMAN [Concomitant]
     Route: 058

REACTIONS (3)
  - DIARRHOEA [None]
  - SYNCOPE VASOVAGAL [None]
  - VOMITING [None]
